FAERS Safety Report 5087215-7 (Version None)
Quarter: 2006Q3

REPORT INFORMATION
  Report Type: 
  Country: None (occurrence: None)
  Receive Date: 20060821
  Receipt Date: 20060322
  Transmission Date: 20061208
  Serious: Yes (Death, Other)
  Sender: FDA-Public Use
  Company Number: I03-341-030

PATIENT
  Age: 57 Year
  Sex: Male

DRUGS (4)
  1. VELCADE [Suspect]
     Indication: MANTLE CELL LYMPHOMA
     Dosage: 1.30 MG/M2
     Dates: start: 20030114, end: 20030321
  2. ALTACE [Concomitant]
  3. MORPHINE [Concomitant]
  4. ATIVAN [Concomitant]

REACTIONS (18)
  - ANAEMIA [None]
  - ANGIOPATHY [None]
  - ARTHRALGIA [None]
  - BLOOD PRESSURE INCREASED [None]
  - CAPILLARY LEAK SYNDROME [None]
  - CARDIOMEGALY [None]
  - HEART RATE INCREASED [None]
  - HEPATIC CONGESTION [None]
  - OXYGEN SATURATION DECREASED [None]
  - PAIN IN EXTREMITY [None]
  - PULMONARY CONGESTION [None]
  - PULMONARY OEDEMA [None]
  - SELF-MEDICATION [None]
  - SPLEEN CONGESTION [None]
  - SPLENIC INFARCTION [None]
  - SPLENOMEGALY [None]
  - THROMBOCYTOPENIA [None]
  - WHITE BLOOD CELL COUNT INCREASED [None]
